APPROVED DRUG PRODUCT: METOLAZONE
Active Ingredient: METOLAZONE
Strength: 2.5MG
Dosage Form/Route: TABLET;ORAL
Application: A076698 | Product #001 | TE Code: AB
Applicant: MYLAN PHARMACEUTICALS INC
Approved: Dec 23, 2003 | RLD: No | RS: No | Type: RX